FAERS Safety Report 13422060 (Version 1)
Quarter: 2017Q2

REPORT INFORMATION
  Report Type: Spontaneous
  Country: US (occurrence: US)
  Receive Date: 20170410
  Receipt Date: 20170410
  Transmission Date: 20170830
  Serious: Yes (Hospitalization, Other)
  Sender: FDA-Public Use
  Company Number: US-009507513-1704USA001813

PATIENT
  Sex: Female

DRUGS (5)
  1. TYLENOL [Suspect]
     Active Substance: ACETAMINOPHEN
     Dosage: UNK
  2. LIPITOR [Suspect]
     Active Substance: ATORVASTATIN CALCIUM
     Dosage: UNK
  3. DECADRON [Suspect]
     Active Substance: DEXAMETHASONE
     Dosage: UNK
  4. MORPHINE [Suspect]
     Active Substance: MORPHINE
     Dosage: 15 MG, UNK
  5. VENLAFAXINE HYDROCHLORIDE. [Suspect]
     Active Substance: VENLAFAXINE HYDROCHLORIDE
     Dosage: UNK

REACTIONS (15)
  - Metastasis [Unknown]
  - Joint swelling [Not Recovered/Not Resolved]
  - Metastases to neck [Unknown]
  - Pulmonary resection [Unknown]
  - Cervical vertebral fracture [Unknown]
  - Pain [Not Recovered/Not Resolved]
  - Cystic lung disease [Unknown]
  - Bone neoplasm [Unknown]
  - Non-small cell lung cancer [Unknown]
  - Deep vein thrombosis [Unknown]
  - Bone neoplasm [Unknown]
  - Osteoporosis [Unknown]
  - Metastases to spinal cord [Unknown]
  - Metastases to central nervous system [Unknown]
  - Sensory loss [Not Recovered/Not Resolved]

NARRATIVE: CASE EVENT DATE: 20160529
